FAERS Safety Report 6325366-7 (Version None)
Quarter: 2009Q3

REPORT INFORMATION
  Report Type: 
  Country: None (occurrence: None)
  Receive Date: 20090824
  Receipt Date: 20090713
  Transmission Date: 20100115
  Serious: No
  Sender: FDA-Public Use
  Company Number: US-ABBOTT-09P-163-0585252-00

PATIENT
  Sex: Male
  Weight: 89.892 kg

DRUGS (5)
  1. NIASPAN [Suspect]
     Indication: HIGH DENSITY LIPOPROTEIN DECREASED
     Route: 048
     Dates: start: 20090301
  2. NIASPAN [Suspect]
     Dosage: 1000MG DAILY
     Dates: start: 20090601
  3. NIASPAN [Suspect]
     Dosage: 1500MG DAILY
     Dates: start: 20090601, end: 20090701
  4. NIASPAN [Suspect]
     Dosage: 2000MG DAILY
     Dates: start: 20090701
  5. CRESTOR [Concomitant]
     Indication: DRUG USE FOR UNKNOWN INDICATION
     Dosage: 10MG DAILY

REACTIONS (3)
  - BLOOD GLUCOSE INCREASED [None]
  - COUGH [None]
  - HIGH DENSITY LIPOPROTEIN ABNORMAL [None]
